FAERS Safety Report 15552501 (Version 1)
Quarter: 2018Q4

REPORT INFORMATION
  Report Type: Report from Study
  Country: US (occurrence: US)
  Receive Date: 20181025
  Receipt Date: 20181025
  Transmission Date: 20190205
  Serious: Yes (Hospitalization, Other)
  Sender: FDA-Public Use
  Company Number: US-ACTELION-A-US2018-176775

PATIENT
  Age: 66 Year
  Sex: Female

DRUGS (54)
  1. MYCOPHENOLATE [Concomitant]
     Active Substance: MYCOPHENOLIC ACID
     Dosage: 250 MG  2 TABLETS  TWICE DAILY
     Dates: start: 20171214
  2. HYDRALAZINE [Concomitant]
     Active Substance: HYDRALAZINE HYDROCHLORIDE
     Dosage: 50 MG, QD
  3. BUMETANIDE. [Concomitant]
     Active Substance: BUMETANIDE
     Dosage: 100 MG, UNK
  4. LEVETIRACETAM. [Concomitant]
     Active Substance: LEVETIRACETAM
     Dosage: 1000 MG, UNK
  5. SILDENAFIL. [Concomitant]
     Active Substance: SILDENAFIL
     Dosage: 20 MG, TID
  6. LEVOTHYROXINE. [Concomitant]
     Active Substance: LEVOTHYROXINE
     Dosage: 125 MCG, UNK
  7. PREDNISONE. [Concomitant]
     Active Substance: PREDNISONE
     Dosage: 5 MG, QD
  8. SODIUM CHLORIDE. [Concomitant]
     Active Substance: SODIUM CHLORIDE
     Dosage: 100 ML, UNK
  9. HEPARIN SODIUM. [Concomitant]
     Active Substance: HEPARIN SODIUM
     Dosage: 25000 UNIT/250 ML, UNK
     Route: 041
  10. PIPERACILLIN AND TAZOBACTAM [Concomitant]
     Active Substance: PIPERACILLIN SODIUM\TAZOBACTAM SODIUM
     Dosage: 3.375 G, UNK
  11. INFLUENZA VIRUS VACCINE [Concomitant]
     Active Substance: INFLUENZA VIRUS VACCINE
  12. ROSUVASTATIN. [Concomitant]
     Active Substance: ROSUVASTATIN
     Dosage: 10 MG, QPM
  13. LATANOPROST. [Concomitant]
     Active Substance: LATANOPROST
     Dosage: 0.005% 1 DROP DAILY AT NIGHT
     Dates: start: 20171214
  14. ASPIRIN. [Concomitant]
     Active Substance: ASPIRIN
     Dosage: 81 MG, QD
  15. CHLORHEXIDINE GLUCONATE. [Concomitant]
     Active Substance: CHLORHEXIDINE GLUCONATE
     Dosage: 15 ML, BID
  16. EVEROLIMUS. [Concomitant]
     Active Substance: EVEROLIMUS
     Dosage: 1.5 MG, UNK
  17. MIDAZOLAM [Concomitant]
     Active Substance: MIDAZOLAM HYDROCHLORIDE
     Dosage: 2MG/2ML, Q2HRS
     Route: 042
  18. DIPHENHYDRAMINE. [Concomitant]
     Active Substance: DIPHENHYDRAMINE
  19. FAMOTIDINE. [Concomitant]
     Active Substance: FAMOTIDINE
     Dosage: 20 MG, QD
  20. MICAFUNGIN. [Concomitant]
     Active Substance: MICAFUNGIN SODIUM
     Dosage: 100MG/10ML, Q24HRS
     Route: 042
     Dates: start: 20181006
  21. DAPSONE. [Concomitant]
     Active Substance: DAPSONE
     Dosage: 25 MG, QD
     Dates: start: 20171214
  22. LEVOTHYROXINE. [Concomitant]
     Active Substance: LEVOTHYROXINE
     Dosage: 25 MG, QD
  23. LABETALOL [Concomitant]
     Active Substance: LABETALOL\LABETALOL HYDROCHLORIDE
     Dosage: 200 MG 2 TABLETS , TWICE DAILY
  24. FENTANYL. [Concomitant]
     Active Substance: FENTANYL
     Dosage: 25MCG/0.5ML, Q2HRS
     Route: 042
     Dates: start: 20181007
  25. ONDANSETRON [Concomitant]
     Active Substance: ONDANSETRON
     Dosage: 4MG/2ML, Q6HRS
     Route: 042
  26. LANOLIN W/MINERAL OIL/PETROLATUM [Concomitant]
     Dosage: 1 APPLICATION, Q12HRS
  27. THIAMINE. [Concomitant]
     Active Substance: THIAMINE
     Dosage: 200 MG, BID
  28. VANCOMYCIN [Concomitant]
     Active Substance: VANCOMYCIN
     Dosage: 1.5 G/15 ML, Q24HR
  29. EPOPROSTENOL SODIUM. [Concomitant]
     Active Substance: EPOPROSTENOL SODIUM
  30. VECURONIUM BROMIDE. [Concomitant]
     Active Substance: VECURONIUM BROMIDE
  31. ROCURONIUM [Concomitant]
     Active Substance: ROCURONIUM BROMIDE
     Dosage: 100MG/10ML, SINGLE
     Route: 042
  32. ALTEPLASE. [Concomitant]
     Active Substance: ALTEPLASE
     Dosage: UNK, Q8HRS
  33. WARFARIN [Concomitant]
     Active Substance: WARFARIN
     Dosage: 5 MG, QD
  34. MULTIVITAMIN [Concomitant]
     Active Substance: VITAMINS
     Dosage: UNK
  35. ACETAMINOPHEN. [Concomitant]
     Active Substance: ACETAMINOPHEN
     Dosage: 500 MG, Q6HRS
  36. HYDROCORTISONE. [Concomitant]
     Active Substance: HYDROCORTISONE
     Dosage: 5 MG, UNK
  37. HYDROCORTISONE. [Concomitant]
     Active Substance: HYDROCORTISONE
     Dosage: 50 MG, Q6HR
     Route: 042
  38. KETAMINE [Concomitant]
     Active Substance: KETAMINE
     Dosage: 100 MG/10 ML
     Route: 042
  39. OPSUMIT [Suspect]
     Active Substance: MACITENTAN
     Indication: PULMONARY ARTERIAL HYPERTENSION
     Dosage: 10 MG, QD
     Route: 048
     Dates: start: 20180719, end: 20180912
  40. PANTOPRAZOLE [Concomitant]
     Active Substance: PANTOPRAZOLE
     Dosage: 40 MG, QD
  41. ASCORBIC ACID. [Concomitant]
     Active Substance: ASCORBIC ACID
     Dosage: 1500 MG, Q6H
  42. TACROLIMUS. [Concomitant]
     Active Substance: TACROLIMUS
     Dosage: 1 MG/ML, BID
     Dates: end: 20181005
  43. ALLOPURINOL. [Concomitant]
     Active Substance: ALLOPURINOL
     Dosage: 100 MG, QOD
  44. FUROSEMIDE. [Concomitant]
     Active Substance: FUROSEMIDE
     Dosage: 20 MG, QD
  45. HEPARIN SODIUM. [Concomitant]
     Active Substance: HEPARIN SODIUM
     Dosage: 5000 ML, UNK
     Route: 041
  46. NOREPINEPHRINE HYDROCHLORIDE [Concomitant]
     Active Substance: NOREPINEPHRINE HYDROCHLORIDE, (+/-)-
     Dosage: 64 MG, UNK
     Route: 042
  47. VASOPRESSIN. [Concomitant]
     Active Substance: VASOPRESSIN
     Dosage: 50 UNITS, UNK
     Route: 041
  48. DAPSONE. [Concomitant]
     Active Substance: DAPSONE
     Dosage: 50 MG, QD
  49. SODIUM CITRATE AND CITRIC ACID [Concomitant]
     Active Substance: CITRIC ACID MONOHYDRATE\SODIUM CITRATE
  50. NICARDIPINE [Concomitant]
     Active Substance: NICARDIPINE
  51. PHOSPHORUS [Concomitant]
     Active Substance: PHOSPHORUS
     Dosage: 250 MG, UNK
     Route: 048
  52. BACITRACIN. [Concomitant]
     Active Substance: BACITRACIN
     Dosage: 1 APPLICATION, QD
     Route: 061
  53. MEROPENEM. [Concomitant]
     Active Substance: MEROPENEM
     Dosage: 1000 MG/20ML, Q12HRS
  54. DEXMEDETOMIDINE. [Concomitant]
     Active Substance: DEXMEDETOMIDINE
     Dosage: 400MCG/100ML, UNK
     Route: 042
     Dates: start: 20181006

REACTIONS (15)
  - Abdominal pain lower [Not Recovered/Not Resolved]
  - N-terminal prohormone brain natriuretic peptide increased [Unknown]
  - Acute respiratory distress syndrome [Not Recovered/Not Resolved]
  - Pulmonary oedema [Not Recovered/Not Resolved]
  - Abdominal pain upper [Not Recovered/Not Resolved]
  - Dyspnoea exertional [Unknown]
  - Chest pain [Unknown]
  - Headache [Recovered/Resolved]
  - Chills [Unknown]
  - Cough [Unknown]
  - Thrombosis [Not Recovered/Not Resolved]
  - Dyspnoea [Not Recovered/Not Resolved]
  - Aspartate aminotransferase increased [Unknown]
  - Alanine aminotransferase increased [Unknown]
  - Subarachnoid haemorrhage [Not Recovered/Not Resolved]

NARRATIVE: CASE EVENT DATE: 20180719
